FAERS Safety Report 5585674-4 (Version None)
Quarter: 2008Q1

REPORT INFORMATION
  Report Type: 
  Country: None (occurrence: None)
  Receive Date: 20080109
  Receipt Date: 20080102
  Transmission Date: 20080703
  Serious: Yes (Other)
  Sender: FDA-Public Use
  Company Number: US-JNJFOC-20080100546

PATIENT
  Sex: Female
  Weight: 58.51 kg

DRUGS (3)
  1. LEVAQUIN [Suspect]
     Route: 048
  2. LEVAQUIN [Suspect]
     Indication: LOWER RESPIRATORY TRACT INFECTION
     Route: 048
  3. ACIDOPHILLUS [Concomitant]
     Route: 065

REACTIONS (7)
  - DYSPNOEA EXERTIONAL [None]
  - ERYTHEMA [None]
  - HYPERAESTHESIA [None]
  - LUNG DISORDER [None]
  - PAIN OF SKIN [None]
  - RASH [None]
  - VAGINAL INFECTION [None]
